FAERS Safety Report 8685409 (Version 3)
Quarter: 2012Q4

REPORT INFORMATION
  Report Type: 
  Country: US (occurrence: US)
  Receive Date: 20120726
  Receipt Date: 20121001
  Transmission Date: 20130627
  Serious: Yes (Hospitalization)
  Sender: FDA-Public Use
  Company Number: US-ELI_LILLY_AND_COMPANY-US201204007090

PATIENT
  Age: 81 Year
  Sex: Female

DRUGS (9)
  1. FORTEO [Suspect]
     Indication: OSTEOPOROSIS
     Dosage: 20 ug, qd
     Route: 058
     Dates: start: 20120403, end: 20120405
  2. FORTEO [Suspect]
     Dosage: 20 ug, qd
     Route: 058
     Dates: start: 20120731
  3. FORTEO [Suspect]
     Dosage: 20 ug, qd
     Route: 058
  4. CALCIUM [Concomitant]
     Dosage: 600 mg, bid
  5. CENTRUM SILVER [Concomitant]
     Dosage: UNK
  6. CALTRATE [Concomitant]
     Dosage: UNK
  7. VITAMIN D3 [Concomitant]
     Dosage: UNK
  8. MULTIVITAMIN [Concomitant]
     Dosage: UNK
  9. VITAMIN D [Concomitant]
     Dosage: UNK

REACTIONS (5)
  - Fall [Recovered/Resolved]
  - Wrist fracture [Recovered/Resolved]
  - Upper limb fracture [Recovered/Resolved]
  - Humerus fracture [Recovered/Resolved]
  - Balance disorder [Recovered/Resolved]
